FAERS Safety Report 8859389 (Version 1)
Quarter: 2012Q4

REPORT INFORMATION
  Report Type: 
  Country: US (occurrence: US)
  Receive Date: 20121024
  Receipt Date: 20121024
  Transmission Date: 20130627
  Serious: Yes (Hospitalization, Other)
  Sender: FDA-Public Use
  Company Number: US-009507513-1109USA03037

PATIENT

DRUGS (5)
  1. FOSAMAX [Suspect]
     Indication: BONE DENSITY DECREASED
     Dosage: UNK, qd
     Route: 048
     Dates: start: 200303, end: 200908
  2. FOSAMAX [Suspect]
     Indication: HORMONE THERAPY
  3. BLOOD THINNER (UNSPECIFIED) [Concomitant]
  4. INSULIN [Concomitant]
     Indication: DIABETES MELLITUS
  5. AMIODARONE [Concomitant]

REACTIONS (36)
  - Femur fracture [Not Recovered/Not Resolved]
  - Open reduction of fracture [Not Recovered/Not Resolved]
  - Hip arthroplasty [Unknown]
  - Fall [Unknown]
  - Open reduction of fracture [Unknown]
  - Renal failure [Unknown]
  - Femur fracture [Unknown]
  - Bone graft [Unknown]
  - Tonsillectomy [Unknown]
  - Haemorrhagic anaemia [Recovered/Resolved]
  - Pulmonary oedema [Recovering/Resolving]
  - Renal failure acute [Unknown]
  - Haemorrhagic anaemia [Recovered/Resolved]
  - Atrial fibrillation [Not Recovered/Not Resolved]
  - Respiratory acidosis [Recovering/Resolving]
  - Cholecystectomy [Unknown]
  - Medical device removal [Unknown]
  - Appendicectomy [Unknown]
  - Delirium [Unknown]
  - Urinary retention [Recovered/Resolved]
  - Leukocytosis [Unknown]
  - Infection [Unknown]
  - Coagulopathy [Unknown]
  - Device failure [Not Recovered/Not Resolved]
  - Hypertension [Unknown]
  - Mental disorder [Unknown]
  - Incisional drainage [Unknown]
  - Laceration [Unknown]
  - Contusion [Unknown]
  - Haematoma [Unknown]
  - Mental disorder [Recovered/Resolved]
  - Fall [Unknown]
  - Fracture nonunion [Not Recovered/Not Resolved]
  - Hypothyroidism [Unknown]
  - Sleep apnoea syndrome [Unknown]
  - Drug ineffective [Unknown]
